FAERS Safety Report 11281791 (Version 1)
Quarter: 2015Q3

REPORT INFORMATION
  Report Type: Report from Study
  Country: BR (occurrence: BR)
  Receive Date: 20150717
  Receipt Date: 20150717
  Transmission Date: 20151125
  Serious: Yes (Hospitalization, Other)
  Sender: FDA-Public Use
  Company Number: PHHY2015BR086096

PATIENT
  Sex: Male
  Weight: 44 kg

DRUGS (1)
  1. EXJADE [Suspect]
     Active Substance: DEFERASIROX
     Indication: SICKLE CELL ANAEMIA
     Dosage: 2 DF, QD (IN THE MORNING)
     Route: 065

REACTIONS (4)
  - Pneumonia [Recovered/Resolved]
  - Weight decreased [Unknown]
  - Product preparation error [Unknown]
  - Nausea [Recovered/Resolved]
